FAERS Safety Report 7639459-5 (Version None)
Quarter: 2011Q3

REPORT INFORMATION
  Report Type: 
  Country: None (occurrence: None)
  Receive Date: 20110727
  Receipt Date: 20110721
  Transmission Date: 20111222
  Serious: Yes (Other)
  Sender: FDA-Public Use
  Company Number: US-GLAXOSMITHKLINE-A0925583A

PATIENT
  Age: 63 Year
  Sex: Female

DRUGS (6)
  1. SINUS MEDICATION [Concomitant]
  2. MUCINEX [Concomitant]
  3. LOSARTAN POTASSIUM [Concomitant]
  4. TOPROL-XL [Concomitant]
  5. LOVAZA [Suspect]
     Indication: BLOOD TRIGLYCERIDES INCREASED
     Dosage: 2CAP PER DAY
     Route: 048
     Dates: end: 20110428
  6. JANUMET [Concomitant]

REACTIONS (4)
  - DYSGEUSIA [None]
  - AGEUSIA [None]
  - DENTAL CARIES [None]
  - ANOSMIA [None]
